FAERS Safety Report 15558001 (Version 1)
Quarter: 2018Q4

REPORT INFORMATION
  Report Type: Spontaneous
  Country: US (occurrence: US)
  Receive Date: 20181027
  Receipt Date: 20181027
  Transmission Date: 20190205
  Serious: No
  Sender: FDA-Public Use
  Company Number: US-009507513-1810USA007606

PATIENT
  Age: 75 Year
  Sex: Female

DRUGS (5)
  1. TOPROL XL [Concomitant]
     Active Substance: METOPROLOL SUCCINATE
     Dosage: UNK
  2. NASONEX [Suspect]
     Active Substance: MOMETASONE FUROATE
     Indication: DRY EYE
     Dosage: UNK
     Route: 045
     Dates: start: 2015
  3. NASONEX [Suspect]
     Active Substance: MOMETASONE FUROATE
     Indication: VISION BLURRED
  4. NASONEX [Suspect]
     Active Substance: MOMETASONE FUROATE
     Indication: EYE PRURITUS
     Dosage: UNK
     Route: 047
  5. NASONEX [Suspect]
     Active Substance: MOMETASONE FUROATE
     Indication: SEASONAL ALLERGY
     Dosage: 1 SQUIRT IN EACH NOSTRIL AS NEEDED
     Route: 045

REACTIONS (4)
  - Drug ineffective [Unknown]
  - Intentional product misuse [Unknown]
  - Product use issue [Unknown]
  - Product use in unapproved indication [Unknown]
